FAERS Safety Report 20989521 (Version 9)
Quarter: 2023Q4

REPORT INFORMATION
  Report Type: Spontaneous
  Country: CA (occurrence: CA)
  Receive Date: 20220621
  Receipt Date: 20231226
  Transmission Date: 20240109
  Serious: Yes (Hospitalization)
  Sender: FDA-Public Use
  Company Number: CA-CELLTRION INC.-2022CA009736

PATIENT

DRUGS (8)
  1. INFLECTRA [Suspect]
     Active Substance: INFLIXIMAB-DYYB
     Indication: Crohn^s disease
     Dosage: 10 MG/KG AT 0,2,6 THEN EVERY 8 WEEKS
     Route: 042
     Dates: start: 20220224
  2. INFLECTRA [Suspect]
     Active Substance: INFLIXIMAB-DYYB
     Dosage: 10 MG/KG AT 0,2,6 THEN EVERY 8 WEEKS
     Route: 042
     Dates: start: 20220407
  3. INFLECTRA [Suspect]
     Active Substance: INFLIXIMAB-DYYB
     Dosage: 10 MG/KG AT 0,2,6 THEN EVERY 8 WEEKS
     Route: 042
     Dates: start: 20220616
  4. INFLECTRA [Suspect]
     Active Substance: INFLIXIMAB-DYYB
     Dosage: 10 MG/KG AT 0,2,6 THEN EVERY 8 WEEKS
     Route: 042
     Dates: start: 20220817
  5. INFLECTRA [Suspect]
     Active Substance: INFLIXIMAB-DYYB
     Dosage: 800 MG (SUPPOSED TO RECEIVE 10 MG/KG (IE. 810 MG))
     Route: 042
     Dates: start: 20221006
  6. INFLECTRA [Suspect]
     Active Substance: INFLIXIMAB-DYYB
     Dosage: 10 MG/KG AT 0, 2, 6 THEN EVERY 8 WEEKS
     Route: 042
     Dates: start: 20221201
  7. INFLECTRA [Suspect]
     Active Substance: INFLIXIMAB-DYYB
     Dosage: 10 MG/KG AT 0, 2, 6 THEN EVERY 8 WEEKS
     Route: 042
     Dates: start: 20230710
  8. INFLECTRA [Suspect]
     Active Substance: INFLIXIMAB-DYYB
     Dosage: 780 MG AFTER 10 WEEKS AND 2 DAYS (10 MG/KG AT 0, 2, 6 THEN EVERY 8 WEEKS)
     Route: 042
     Dates: start: 20230920

REACTIONS (10)
  - Condition aggravated [Unknown]
  - Drug level decreased [Not Recovered/Not Resolved]
  - Weight increased [Not Recovered/Not Resolved]
  - Pyrexia [Recovered/Resolved]
  - Oropharyngeal pain [Recovered/Resolved]
  - Off label use [Unknown]
  - Off label use [Unknown]
  - Off label use [Unknown]
  - Intentional product use issue [Unknown]
  - Inappropriate schedule of product administration [Unknown]

NARRATIVE: CASE EVENT DATE: 20220101
